FAERS Safety Report 5524689-9 (Version None)
Quarter: 2007Q4

REPORT INFORMATION
  Report Type: 
  Country: None (occurrence: None)
  Receive Date: 20071123
  Receipt Date: 20071114
  Transmission Date: 20080405
  Serious: Yes (Death, Other)
  Sender: FDA-Public Use
  Company Number: IN-PFIZER INC-2007093505

PATIENT
  Age: 30 Year
  Sex: Male
  Weight: 80 kg

DRUGS (2)
  1. MAGNEX [Suspect]
     Indication: SEPSIS
     Route: 042
  2. MERONEM [Concomitant]
     Dates: start: 20071031, end: 20071102

REACTIONS (3)
  - DEATH [None]
  - DRUG INEFFECTIVE [None]
  - SEPTIC SHOCK [None]
